FAERS Safety Report 6784796-X (Version None)
Quarter: 2010Q2

REPORT INFORMATION
  Report Type: 
  Country: None (occurrence: None)
  Receive Date: 20100622
  Receipt Date: 20100614
  Transmission Date: 20101027
  Serious: Yes (Other)
  Sender: FDA-Public Use
  Company Number: PHHO2010DE09104

PATIENT
  Sex: Male

DRUGS (9)
  1. STARLIX [Suspect]
     Indication: DIABETES MELLITUS
     Dosage: 120MG 3 TIMES PER DAY
     Route: 048
     Dates: start: 20011101
  2. SAXAGLIPTIN [Suspect]
     Indication: TYPE 2 DIABETES MELLITUS
     Dosage: UNK
     Dates: start: 20100108, end: 20100331
  3. SAXAGLIPTIN [Suspect]
     Dosage: UNK
     Dates: start: 20100406, end: 20100420
  4. METFORMIN HYDROCHLORIDE [Suspect]
     Indication: TYPE 2 DIABETES MELLITUS
     Dosage: 500MG 2 TIMES PER DAY
     Route: 048
     Dates: start: 20010701
  5. GLUCOBAY [Concomitant]
     Dosage: UNK
     Dates: start: 20050101, end: 20100107
  6. METOPROLOL TARTRATE [Concomitant]
     Dosage: UNK
     Dates: start: 20010401
  7. ALLOPURINOL [Concomitant]
     Dosage: UNK
     Dates: start: 19910101
  8. SIMVASTATIN [Concomitant]
     Dosage: UNK
     Dates: start: 20060208
  9. AVODART [Concomitant]
     Dosage: UNK
     Dates: start: 20071101

REACTIONS (4)
  - BLOOD CREATININE INCREASED [None]
  - BLOOD URIC ACID INCREASED [None]
  - LEUKOCYTURIA [None]
  - URINE ABNORMALITY [None]
